FAERS Safety Report 4862628-4 (Version None)
Quarter: 2005Q4

REPORT INFORMATION
  Report Type: 
  Country: None (occurrence: None)
  Receive Date: 20051221
  Receipt Date: 20050721
  Transmission Date: 20060501
  Serious: Yes (Hospitalization, Other)
  Sender: FDA-Public Use
  Company Number: US-BRISTOL-MYERS SQUIBB COMPANY-13046545

PATIENT
  Age: 76 Year
  Sex: Male

DRUGS (9)
  1. CETUXIMAB [Suspect]
     Indication: NON-SMALL CELL LUNG CANCER
     Dosage: CYCLE 3, DAY 1 GIVEN 02-AUG-05.
     Route: 042
     Dates: start: 20050712, end: 20050712
  2. CARBOPLATIN [Suspect]
     Indication: NON-SMALL CELL LUNG CANCER
     Dosage: DOSE REDUCED ON 02-AUG-2005. D/C.
     Route: 042
     Dates: start: 20050621, end: 20050802
  3. PACLITAXEL [Suspect]
     Indication: NON-SMALL CELL LUNG CANCER
     Dosage: DOSE REDUCED ON 02-AUG-2005. D/C.
     Route: 042
     Dates: start: 20050621, end: 20050802
  4. ASPIRIN [Concomitant]
  5. CIPROFLOXACIN [Concomitant]
     Dates: start: 20050615
  6. M.V.I. [Concomitant]
  7. NORVASC [Concomitant]
     Indication: HYPERTENSION
  8. PREDNISONE TAB [Concomitant]
     Dates: start: 20050627
  9. ZOFRAN [Concomitant]
     Dates: start: 20050627

REACTIONS (2)
  - DEHYDRATION [None]
  - HYPOMAGNESAEMIA [None]
